FAERS Safety Report 9124270 (Version 5)
Quarter: 2015Q1

REPORT INFORMATION
  Report Type: Report from Study
  Country: BR (occurrence: BR)
  Receive Date: 20130227
  Receipt Date: 20150318
  Transmission Date: 20150721
  Serious: Yes (Hospitalization, Disabling, Other)
  Sender: FDA-Public Use
  Company Number: BR-ROCHE-801425

PATIENT
  Age: 59 Year
  Sex: Female
  Weight: 58 kg

DRUGS (11)
  1. MABTHERA [Suspect]
     Active Substance: RITUXIMAB
     Route: 042
  2. DIPYRONE [Concomitant]
     Active Substance: DIPYRONE
  3. FOLIC ACID. [Concomitant]
     Active Substance: FOLIC ACID
  4. DEPURA [Concomitant]
     Active Substance: CHOLECALCIFEROL
  5. PREDNISONE. [Concomitant]
     Active Substance: PREDNISONE
  6. MABTHERA [Suspect]
     Active Substance: RITUXIMAB
     Route: 042
  7. METAMIZOLE [Concomitant]
     Active Substance: METAMIZOLE
  8. MABTHERA [Suspect]
     Active Substance: RITUXIMAB
     Route: 042
  9. ZOLEDRONIC ACID [Suspect]
     Active Substance: ZOLEDRONIC ACID
     Indication: PRODUCT USED FOR UNKNOWN INDICATION
     Route: 065
  10. METHOTREXATE [Concomitant]
     Active Substance: METHOTREXATE
  11. MABTHERA [Suspect]
     Active Substance: RITUXIMAB
     Indication: RHEUMATOID ARTHRITIS
     Dosage: TOOK FOUR INFUSIONS BETWEEN 01/NOV/2010 AND 18/NOV/2011
     Route: 042
     Dates: start: 201011, end: 201403

REACTIONS (14)
  - Gait disturbance [Not Recovered/Not Resolved]
  - Weight increased [Not Recovered/Not Resolved]
  - Gastritis [Unknown]
  - Bone pain [Not Recovered/Not Resolved]
  - Pain in extremity [Unknown]
  - Incision site vesicles [Unknown]
  - Device failure [Recovered/Resolved with Sequelae]
  - Upper limb fracture [Not Recovered/Not Resolved]
  - Inflammation [Unknown]
  - Body temperature decreased [Unknown]
  - Arthralgia [Recovering/Resolving]
  - Arthritis [Unknown]
  - Pain [Not Recovered/Not Resolved]
  - Malaise [Not Recovered/Not Resolved]

NARRATIVE: CASE EVENT DATE: 201405
